FAERS Safety Report 9105524 (Version 3)
Quarter: 2013Q1

REPORT INFORMATION
  Report Type: Spontaneous
  Country: US (occurrence: US)
  Receive Date: 20130220
  Receipt Date: 20130309
  Transmission Date: 20140127
  Serious: Yes (Other)
  Sender: FDA-Public Use
  Company Number: US-UCBSA-078333

PATIENT
  Age: 39 Year
  Sex: Female
  Weight: 63.5 kg

DRUGS (6)
  1. VIMPAT [Suspect]
     Indication: CONVULSION
     Dosage: UNKNOWN DOSE
     Dates: start: 201207, end: 2012
  2. VIMPAT [Suspect]
     Indication: CONVULSION
     Dates: start: 2012, end: 2012
  3. VIMPAT [Suspect]
     Indication: CONVULSION
     Dates: start: 2012, end: 201302
  4. VIMPAT [Suspect]
     Indication: CONVULSION
     Dates: start: 20130208
  5. KEPPRA [Suspect]
     Indication: CONVULSION
  6. LISINOPRIL HCTZ [Concomitant]
     Indication: HYPERTENSION
     Dosage: UNKNOWN DOSE

REACTIONS (4)
  - Epilepsy [Not Recovered/Not Resolved]
  - Anxiety [Recovering/Resolving]
  - Convulsion [Recovering/Resolving]
  - Overdose [Unknown]
